FAERS Safety Report 17880054 (Version 1)
Quarter: 2020Q2

REPORT INFORMATION
  Report Type: Report from Study
  Country: CO (occurrence: CO)
  Receive Date: 20200610
  Receipt Date: 20200610
  Transmission Date: 20200714
  Serious: Yes (Hospitalization)
  Sender: FDA-Public Use
  Company Number: CO-ROCHE-2614345

PATIENT

DRUGS (1)
  1. XOLAIR [Suspect]
     Active Substance: OMALIZUMAB
     Indication: DERMATITIS ATOPIC
     Dosage: 150 MG/ML, EVERY 4 WEEKS
     Route: 065

REACTIONS (5)
  - Cellulitis [Unknown]
  - Drug intolerance [Unknown]
  - Off label use [Unknown]
  - Intentional product use issue [Unknown]
  - Infection [Unknown]
